FAERS Safety Report 6496178-9 (Version None)
Quarter: 2009Q4

REPORT INFORMATION
  Report Type: 
  Country: None (occurrence: None)
  Receive Date: 20091214
  Receipt Date: 20091014
  Transmission Date: 20100525
  Serious: No
  Sender: FDA-Public Use
  Company Number: US-BRISTOL-MYERS SQUIBB COMPANY-14816516

PATIENT
  Age: 52 Year
  Sex: Female
  Weight: 117 kg

DRUGS (2)
  1. ABILIFY [Suspect]
     Indication: DEPRESSION
     Dosage: INITIATED AT 45MG/D
     Route: 048
  2. TYLENOL (CAPLET) [Concomitant]
     Indication: PAIN

REACTIONS (4)
  - FEELING HOT [None]
  - OVERDOSE [None]
  - TREMOR [None]
  - VOMITING [None]
